FAERS Safety Report 7656716-7 (Version None)
Quarter: 2011Q3

REPORT INFORMATION
  Report Type: 
  Country: None (occurrence: None)
  Receive Date: 20110801
  Receipt Date: 20110715
  Transmission Date: 20111222
  Serious: Yes (Life-Threatening, Hospitalization, Other)
  Sender: FDA-Public Use
  Company Number: 2011MA008976

PATIENT
  Age: 65 Year
  Sex: Male

DRUGS (1)
  1. VINORELBINE [Suspect]
     Indication: METASTATIC NEOPLASM
     Dosage: 55.5 MG, IV
     Route: 042

REACTIONS (6)
  - RESPIRATORY DISTRESS [None]
  - HEART RATE INCREASED [None]
  - BRONCHOSPASM [None]
  - ACUTE CORONARY SYNDROME [None]
  - RESPIRATORY ACIDOSIS [None]
  - DIASTOLIC DYSFUNCTION [None]
